FAERS Safety Report 7332612-X (Version None)
Quarter: 2011Q1

REPORT INFORMATION
  Report Type: 
  Country: None (occurrence: None)
  Receive Date: 20110304
  Receipt Date: 20110216
  Transmission Date: 20110831
  Serious: Yes (Hospitalization)
  Sender: FDA-Public Use
  Company Number: FR-PFIZER INC-FR-WYE-G06210010

PATIENT
  Age: 30 Year
  Sex: Male

DRUGS (8)
  1. SOMATOSTATIN [Concomitant]
     Dosage: UNK
     Route: 065
     Dates: end: 20100522
  2. FUROSEMIDE [Concomitant]
     Dosage: 1500 MG, 1X/DAY
     Route: 065
  3. TAZOCILLINE [Suspect]
     Indication: BACTERIAL SEPSIS
     Dosage: 4.0 G, 2X/DAY
     Route: 042
     Dates: start: 20100518, end: 20100529
  4. AMINO ACIDS [Concomitant]
  5. NEXIUM [Concomitant]
     Dosage: 40 MG ONCE A DAY
     Route: 065
  6. CACIT D3 [Concomitant]
     Dosage: 1 DF, 1X/DAY
  7. DIPEPTIVEN [Concomitant]
  8. TRIFLUCAN [Suspect]
     Indication: BACTERIAL SEPSIS
     Dosage: 400 MG DAILY
     Route: 042
     Dates: start: 20100518, end: 20100622

REACTIONS (14)
  - WOUND HAEMORRHAGE [None]
  - SPLENOMEGALY [None]
  - MUCOUS STOOLS [None]
  - SMALL INTESTINAL HAEMORRHAGE [None]
  - PLATELET COUNT DECREASED [None]
  - EFFUSION [None]
  - EPISTAXIS [None]
  - ILEUS [None]
  - ANAEMIA [None]
  - PLATELET AGGREGATION ABNORMAL [None]
  - GASTROINTESTINAL MUCOSAL DISORDER [None]
  - HAEMATOCHEZIA [None]
  - POST PROCEDURAL HAEMORRHAGE [None]
  - HEADACHE [None]
